FAERS Safety Report 8888996 (Version 1)
Quarter: 2012Q4

REPORT INFORMATION
  Report Type: 
  Country: US (occurrence: US)
  Receive Date: 20121106
  Receipt Date: 20121106
  Transmission Date: 20130627
  Serious: No
  Sender: FDA-Public Use
  Company Number: US-009507513-1211USA000729

PATIENT
  Age: 63 Year
  Sex: Female

DRUGS (1)
  1. FOSAMAX [Suspect]
     Indication: ALOPECIA
     Dosage: 1 DF, qw
     Route: 048
     Dates: start: 201203, end: 201206

REACTIONS (2)
  - Alopecia [Recovering/Resolving]
  - Off label use [Unknown]
